FAERS Safety Report 17328915 (Version 1)
Quarter: 2020Q1

REPORT INFORMATION
  Report Type: Spontaneous
  Country: US (occurrence: US)
  Receive Date: 20200127
  Receipt Date: 20200127
  Transmission Date: 20200409
  Serious: Yes (Other)
  Sender: FDA-Public Use
  Company Number: US-AKORN PHARMACEUTICALS-2019AKN02590

PATIENT
  Sex: Male
  Weight: 92.97 kg

DRUGS (2)
  1. MYORISAN [Suspect]
     Active Substance: ISOTRETINOIN
     Indication: ACNE
     Dosage: UNK
     Dates: start: 20190226, end: 20191223
  2. MYORISAN [Suspect]
     Active Substance: ISOTRETINOIN
     Indication: ACNE
     Dosage: UNK
     Dates: start: 20190417, end: 20191223

REACTIONS (4)
  - Mood altered [Recovered/Resolved]
  - Treatment noncompliance [Recovered/Resolved]
  - Myalgia [Unknown]
  - Dry skin [Unknown]

NARRATIVE: CASE EVENT DATE: 2019
